FAERS Safety Report 8338675-7 (Version None)
Quarter: 2012Q2

REPORT INFORMATION
  Report Type: 
  Country: None (occurrence: None)
  Receive Date: 20120504
  Receipt Date: 20120424
  Transmission Date: 20120825
  Serious: Yes (Hospitalization)
  Sender: FDA-Public Use
  Company Number: BE-ABBOTT-12P-013-0911387-01

PATIENT
  Sex: Female

DRUGS (23)
  1. HUMIRA [Suspect]
     Indication: CROHN'S DISEASE
     Route: 058
     Dates: start: 20060201
  2. HUMIRA [Suspect]
     Route: 058
     Dates: end: 20090121
  3. LORAZEPAM [Concomitant]
     Indication: INSOMNIA
     Dates: start: 20080930, end: 20120201
  4. PANTOPRAZOLE [Concomitant]
     Indication: PROPHYLAXIS
     Dates: start: 20110107
  5. CORTICOSTEROIDS [Concomitant]
     Indication: CROHN'S DISEASE
  6. ENTOCORT EC [Concomitant]
     Indication: CROHN'S DISEASE
     Dates: start: 20050601, end: 20110101
  7. AUGMENTIN [Concomitant]
     Indication: PNEUMONIA
     Dates: start: 20120127
  8. BISOPROLOL FUMARATE [Concomitant]
     Indication: HYPERTENSION
     Dates: start: 20100101
  9. DUOVENT [Concomitant]
     Indication: CHRONIC OBSTRUCTIVE PULMONARY DISEASE
  10. AMLODIPINE BESYLATE [Concomitant]
     Indication: HYPERTENSION
     Dates: start: 20100401
  11. IMMUNOSUPPRESSANTS [Concomitant]
     Indication: CROHN'S DISEASE
  12. FOLIC ACID [Concomitant]
     Indication: VITAMIN SUPPLEMENTATION
     Dates: start: 20111207
  13. METHYLPREDNISOLONE [Concomitant]
     Indication: CHRONIC OBSTRUCTIVE PULMONARY DISEASE
     Dates: start: 20120130
  14. HUMIRA [Suspect]
     Route: 058
     Dates: start: 20080516
  15. HUMIRA [Suspect]
     Route: 058
  16. REMICADE [Concomitant]
     Indication: CROHN'S DISEASE
  17. SPIRIVA [Concomitant]
     Indication: EMPHYSEMA
     Dates: start: 20081209
  18. HUMIRA [Suspect]
     Route: 058
     Dates: start: 20100630
  19. METHOTREXATE [Concomitant]
     Indication: CROHN'S DISEASE
     Dates: start: 20120101
  20. FLUTICASONE PROPIONATE/SALMETEROL [Concomitant]
     Indication: CHRONIC OBSTRUCTIVE PULMONARY DISEASE
     Dates: start: 20100908
  21. HUMIRA [Suspect]
     Route: 058
     Dates: start: 20120201
  22. OMEPRAZOLE [Concomitant]
     Indication: GASTRITIS
     Dates: start: 20080401, end: 20110101
  23. ACETAMINOPHEN [Concomitant]
     Indication: ARTHRALGIA
     Dates: start: 20080701

REACTIONS (5)
  - WEIGHT DECREASED [None]
  - INTESTINAL OBSTRUCTION [None]
  - CROHN'S DISEASE [None]
  - GENERAL PHYSICAL HEALTH DETERIORATION [None]
  - CHRONIC OBSTRUCTIVE PULMONARY DISEASE [None]
